FAERS Safety Report 21613264 (Version 1)
Quarter: 2022Q4

REPORT INFORMATION
  Report Type: Spontaneous
  Country: US (occurrence: US)
  Receive Date: 20221118
  Receipt Date: 20221118
  Transmission Date: 20230112
  Serious: Yes (Hospitalization)
  Sender: FDA-Public Use
  Company Number: US-JNJFOC-20221125091

PATIENT
  Age: 8 Decade
  Sex: Female

DRUGS (5)
  1. OPSUMIT [Suspect]
     Active Substance: MACITENTAN
     Indication: Product used for unknown indication
     Route: 048
  2. MIDODRINE [Concomitant]
     Active Substance: MIDODRINE
  3. BUMEX [Concomitant]
     Active Substance: BUMETANIDE
  4. LASIX [Concomitant]
     Active Substance: FUROSEMIDE
  5. METOPROLOL [Concomitant]
     Active Substance: METOPROLOL

REACTIONS (1)
  - Hospitalisation [Unknown]

NARRATIVE: CASE EVENT DATE: 20220101
